FAERS Safety Report 11137585 (Version 1)
Quarter: 2015Q2

REPORT INFORMATION
  Report Type: Spontaneous
  Country: US (occurrence: US)
  Receive Date: 20150526
  Receipt Date: 20150526
  Transmission Date: 20150821
  Serious: Yes (Hospitalization)
  Sender: FDA-Public Use
  Company Number: PHHY2015US061135

PATIENT
  Age: 55 Year
  Sex: Female

DRUGS (5)
  1. BUPROPION [Concomitant]
     Active Substance: BUPROPION
     Indication: SCHIZOAFFECTIVE DISORDER
     Dosage: 150 MG,
     Route: 065
  2. OLANZAPINE. [Suspect]
     Active Substance: OLANZAPINE
     Dosage: 10 MG,
     Route: 065
  3. OLANZAPINE. [Suspect]
     Active Substance: OLANZAPINE
     Dosage: 20 MG, QD
  4. OLANZAPINE. [Suspect]
     Active Substance: OLANZAPINE
     Indication: SCHIZOAFFECTIVE DISORDER
     Dosage: 40 MG, UNK
     Route: 065
  5. LITHIUM. [Concomitant]
     Active Substance: LITHIUM
     Indication: SCHIZOAFFECTIVE DISORDER
     Dosage: 600 MG, UNK
     Route: 065

REACTIONS (4)
  - Mental status changes [Recovered/Resolved]
  - Hepatotoxicity [Recovered/Resolved]
  - Hypophagia [Recovered/Resolved]
  - Hallucination [Recovered/Resolved]
